FAERS Safety Report 20646684 (Version 1)
Quarter: 2022Q1

REPORT INFORMATION
  Report Type: Other
  Country: US (occurrence: None)
  Receive Date: 20220329
  Receipt Date: 20220329
  Transmission Date: 20220424
  Serious: Yes (Other)
  Sender: FDA-Public Use
  Company Number: US-ROCHE-3060695

PATIENT
  Sex: Female

DRUGS (2)
  1. VALCYTE [Suspect]
     Active Substance: VALGANCICLOVIR HYDROCHLORIDE
     Indication: Liver transplant
     Dosage: 50MG/ML ORAL SOLUTION, 18ML DAILY
     Route: 048
  2. CELLCEPT [Suspect]
     Active Substance: MYCOPHENOLATE MOFETIL
     Indication: Liver transplant
     Dosage: 1 CAPSULE BID
     Route: 048

REACTIONS (3)
  - Neutropenia [Unknown]
  - Off label use [Unknown]
  - Off label use [Unknown]
